FAERS Safety Report 5918314-2 (Version None)
Quarter: 2008Q4

REPORT INFORMATION
  Report Type: 
  Country: None (occurrence: None)
  Receive Date: 20081010
  Receipt Date: 20080930
  Transmission Date: 20090506
  Serious: Yes (Hospitalization)
  Sender: FDA-Public Use
  Company Number: 76720

PATIENT
  Age: 46 Year
  Sex: Female

DRUGS (5)
  1. MORPHINE SULFATE [Suspect]
     Indication: BACK PAIN
     Dosage: 60 MG TID ORALLY
     Route: 048
     Dates: start: 20070101, end: 20080101
  2. UNSPECIFIED HYPERTENSION MEDICATION(S) [Concomitant]
  3. UNSPECIFIED STOMACH MEDICATION(S) [Concomitant]
  4. COZAAR [Concomitant]
  5. UNSPECIFIED ^WATER PILLS^ [Concomitant]

REACTIONS (4)
  - HEPATIC FAILURE [None]
  - OVERDOSE [None]
  - PRODUCT QUALITY ISSUE [None]
  - RENAL FAILURE [None]
